APPROVED DRUG PRODUCT: BUPIVACAINE HYDROCHLORIDE AND EPINEPHRINE
Active Ingredient: BUPIVACAINE HYDROCHLORIDE; EPINEPHRINE
Strength: 0.75%;0.005MG/ML
Dosage Form/Route: INJECTABLE;INJECTION
Application: A071171 | Product #001
Applicant: HOSPIRA INC
Approved: Jun 16, 1988 | RLD: No | RS: No | Type: DISCN